FAERS Safety Report 9813375 (Version 1)
Quarter: 2014Q1

REPORT INFORMATION
  Report Type: Spontaneous
  Country: None (occurrence: None)
  Receive Date: 20140109
  Receipt Date: 20140109
  Transmission Date: 20141002
  Serious: Yes (Death, Life-Threatening, Hospitalization)
  Sender: FDA-Public Use
  Company Number: DAV-AE-MTX-13-72

PATIENT
  Age: 11 Year
  Sex: Male

DRUGS (6)
  1. METHOTREXATE [Suspect]
     Indication: ACUTE LYMPHOCYTIC LEUKAEMIA
     Dosage: SINGLE DOSE, INTRATHECAL
     Route: 037
  2. CYCLOPHOSPHAMIDE [Concomitant]
  3. ETOPOSIDE [Concomitant]
  4. NELARABINE [Concomitant]
  5. CYTARABINE [Concomitant]
  6. PREDNISOLONE [Concomitant]

REACTIONS (8)
  - Guillain-Barre syndrome [None]
  - Grand mal convulsion [None]
  - Blast cell crisis [None]
  - Necrosis [None]
  - Dysaesthesia [None]
  - Pain [None]
  - Cytotoxic oedema [None]
  - Spinal cord disorder [None]
